FAERS Safety Report 4411104-1 (Version None)
Quarter: 2004Q3

REPORT INFORMATION
  Report Type: 
  Country: None (occurrence: None)
  Receive Date: 20040726
  Receipt Date: 20040708
  Transmission Date: 20050211
  Serious: No
  Sender: FDA-Public Use
  Company Number: 196469

PATIENT
  Age: 55 Year
  Sex: Female
  Weight: 77.1115 kg

DRUGS (5)
  1. AVONEX [Suspect]
     Indication: MULTIPLE SCLEROSIS
     Dosage: 30 MCG QW IM
     Route: 030
     Dates: start: 20010101, end: 20031001
  2. AVONEX [Suspect]
     Indication: MULTIPLE SCLEROSIS
     Dosage: 30 MCG QW IM
     Route: 030
     Dates: start: 20031001
  3. BACLOFEN [Concomitant]
  4. NEURONTIN [Concomitant]
  5. ZANAFLEX [Concomitant]

REACTIONS (6)
  - ANGLE CLOSURE GLAUCOMA [None]
  - BLINDNESS [None]
  - CATARACT [None]
  - HEADACHE [None]
  - TRANSIENT ISCHAEMIC ATTACK [None]
  - URINARY TRACT INFECTION [None]
